FAERS Safety Report 9298237 (Version 3)
Quarter: 2013Q3

REPORT INFORMATION
  Report Type: Spontaneous
  Country: GB (occurrence: GB)
  Receive Date: 20130520
  Receipt Date: 20130724
  Transmission Date: 20140515
  Serious: Yes (Other)
  Sender: FDA-Public Use
  Company Number: GB-ROCHE-1225976

PATIENT
  Sex: Female

DRUGS (1)
  1. HERCEPTIN [Suspect]
     Indication: PRODUCT USED FOR UNKNOWN INDICATION
     Dosage: CYCLE 13
     Route: 065

REACTIONS (13)
  - Decubitus ulcer [Unknown]
  - Multiple sclerosis [Unknown]
  - Constipation [Unknown]
  - Myalgia [Unknown]
  - Dry skin [Unknown]
  - Blister [Unknown]
  - Joint stiffness [Unknown]
  - Arthralgia [Unknown]
  - Insomnia [Unknown]
  - Blister [Unknown]
  - Fatigue [Unknown]
  - Restlessness [Unknown]
  - Asthenia [Unknown]
